FAERS Safety Report 5068762-0 (Version None)
Quarter: 2006Q3

REPORT INFORMATION
  Report Type: 
  Country: None (occurrence: None)
  Receive Date: 20060802
  Receipt Date: 20060320
  Transmission Date: 20061208
  Serious: No
  Sender: FDA-Public Use
  Company Number: US-BRISTOL-MYERS SQUIBB COMPANY-13320841

PATIENT
  Age: 58 Year
  Sex: Female
  Weight: 72 kg

DRUGS (9)
  1. COUMADIN [Suspect]
     Indication: CEREBROVASCULAR ACCIDENT
     Dates: start: 20030901
  2. LANTUS [Concomitant]
  3. HUMALOG [Concomitant]
  4. VYTORIN [Concomitant]
  5. ATENOLOL [Concomitant]
  6. LISINOPRIL [Concomitant]
  7. PAXIL [Concomitant]
  8. PREVACID [Concomitant]
  9. ALLEGRA [Concomitant]

REACTIONS (1)
  - INTERNATIONAL NORMALISED RATIO INCREASED [None]
